FAERS Safety Report 18839282 (Version 1)
Quarter: 2021Q1

REPORT INFORMATION
  Report Type: Other
  Country: SG (occurrence: SG)
  Receive Date: 20210203
  Receipt Date: 20210203
  Transmission Date: 20210419
  Serious: Yes (Death)
  Sender: FDA-Public Use
  Company Number: SG-ROCHE-2759147

PATIENT
  Age: 73 Year
  Sex: Male

DRUGS (2)
  1. LOVASTATIN. [Concomitant]
     Active Substance: LOVASTATIN
     Indication: HYPERLIPIDAEMIA
     Route: 065
  2. ALTEPLASE. [Suspect]
     Active Substance: ALTEPLASE
     Indication: ISCHAEMIC STROKE
     Route: 042

REACTIONS (5)
  - General physical health deterioration [Fatal]
  - Somnolence [Fatal]
  - Thrombolysis [Fatal]
  - Haemorrhagic infarction [Fatal]
  - Hemiparesis [Fatal]
